FAERS Safety Report 7770384-5 (Version None)
Quarter: 2011Q3

REPORT INFORMATION
  Report Type: 
  Country: None (occurrence: None)
  Receive Date: 20110922
  Receipt Date: 20100827
  Transmission Date: 20111222
  Serious: No
  Sender: FDA-Public Use
  Company Number: US-ASTRAZENECA-2010SE40564

PATIENT
  Sex: Female

DRUGS (3)
  1. SEROQUEL [Suspect]
     Route: 048
  2. KLONOPIN [Concomitant]
  3. RISPERDAL [Concomitant]

REACTIONS (2)
  - DYSACUSIS [None]
  - DIZZINESS [None]
